FAERS Safety Report 7577214-5 (Version None)
Quarter: 2011Q2

REPORT INFORMATION
  Report Type: 
  Country: None (occurrence: None)
  Receive Date: 20110628
  Receipt Date: 20080905
  Transmission Date: 20111010
  Serious: No
  Sender: FDA-Public Use
  Company Number: US-BAYER-2011-051878

PATIENT
  Age: 47 Year
  Sex: Female
  Weight: 86 kg

DRUGS (8)
  1. VERPAMIL HCL [Concomitant]
     Dosage: 180MG DAILY
     Route: 048
  2. TRASYLOL [Suspect]
     Indication: CORONARY ARTERY BYPASS
     Dosage: 10,000 K.I.U DRIP
     Route: 041
     Dates: start: 20060423
  3. PLATELETS [Concomitant]
     Dosage: 2 UNITS
  4. ACETYLSALICYLIC ACID SRT [Concomitant]
     Dosage: 325MG DAILY
     Route: 048
  5. PLASMA [Concomitant]
     Dosage: 4 UNITS
  6. HEPARIN [Concomitant]
     Dosage: 10,000 UNITS
  7. NITROGLYCERIN [Concomitant]
     Dosage: 0.4MG AS NEEDED
     Route: 060
  8. LIPITOR [Concomitant]
     Dosage: 10MG DAILY
     Route: 048

REACTIONS (1)
  - INJURY [None]
